FAERS Safety Report 9931857 (Version 1)
Quarter: 2014Q1

REPORT INFORMATION
  Report Type: Spontaneous
  Country: US (occurrence: None)
  Receive Date: 20140226
  Receipt Date: 20140226
  Transmission Date: 20141002
  Serious: No
  Sender: FDA-Public Use
  Company Number: SYM-2013-02806

PATIENT
  Age: 81 Year
  Sex: Female
  Weight: 74.84 kg

DRUGS (2)
  1. CARDIZEM CD [Suspect]
     Indication: ATRIAL FIBRILLATION
     Dosage: 2 IN 1 D
     Route: 048
     Dates: start: 201301
  2. COUMADIN (WARFARIN SODIUM) (WARFARIN SODIUM) [Concomitant]

REACTIONS (5)
  - Fatigue [None]
  - Abdominal discomfort [None]
  - Abnormal faeces [None]
  - Influenza [None]
  - Asthenia [None]
